FAERS Safety Report 6011107-X (Version None)
Quarter: 2008Q4

REPORT INFORMATION
  Report Type: 
  Country: None (occurrence: None)
  Receive Date: 20081218
  Receipt Date: 20081203
  Transmission Date: 20090506
  Serious: Yes (Hospitalization, Other)
  Sender: FDA-Public Use
  Company Number: DE-GENENTECH-265164

PATIENT
  Sex: Female

DRUGS (7)
  1. AVASTIN [Suspect]
     Indication: COLON CANCER METASTATIC
     Dosage: 415 MG, UNK
     Dates: start: 20070911, end: 20080610
  2. AVASTIN [Suspect]
     Dosage: 400 MG, UNK
     Dates: start: 20080102, end: 20080129
  3. AVASTIN [Suspect]
     Dosage: 200 MG, UNK
     Dates: start: 20080311, end: 20080513
  4. AVASTIN [Suspect]
     Dosage: 184 MG, UNK
     Dates: start: 20080527, end: 20080610
  5. FLUOROURACIL [Concomitant]
     Indication: COLON CANCER METASTATIC
     Dosage: UNK
     Dates: end: 20080610
  6. FOLINIC ACID [Concomitant]
     Indication: COLON CANCER METASTATIC
     Dosage: UNK
     Dates: end: 20080610
  7. OXALIPLATIN [Concomitant]
     Indication: COLON CANCER METASTATIC
     Dosage: UNK
     Dates: end: 20080610

REACTIONS (1)
  - CYSTITIS [None]
